FAERS Safety Report 6884641-8 (Version None)
Quarter: 2010Q3

REPORT INFORMATION
  Report Type: 
  Country: None (occurrence: None)
  Receive Date: 20100729
  Receipt Date: 20070727
  Transmission Date: 20110219
  Serious: No
  Sender: FDA-Public Use
  Company Number: US-PFIZER INC-2007062277

PATIENT
  Sex: Female
  Weight: 72.272 kg

DRUGS (7)
  1. CELEBREX [Suspect]
     Indication: MUSCULOSKELETAL PAIN
     Dosage: 200MG QD EVERYDAY TDD:200MG
     Dates: start: 20070727
  2. CELEBREX [Suspect]
     Indication: PAIN IN EXTREMITY
  3. ACETAMINOPHEN [Concomitant]
  4. CODEINE [Concomitant]
  5. CRESTOR [Concomitant]
  6. HYDROCHLOROTHIAZIDE [Concomitant]
  7. ACETYLSALICYLIC ACID SRT [Concomitant]

REACTIONS (2)
  - DIZZINESS [None]
  - DRUG ADMINISTRATION ERROR [None]
